FAERS Safety Report 6273434-0 (Version None)
Quarter: 2009Q3

REPORT INFORMATION
  Report Type: 
  Country: None (occurrence: None)
  Receive Date: 20090720
  Receipt Date: 20090708
  Transmission Date: 20100115
  Serious: Yes (Other)
  Sender: FDA-Public Use
  Company Number: PHEH2009US07257

PATIENT
  Sex: Male

DRUGS (6)
  1. RECLAST [Suspect]
     Indication: OSTEOPOROSIS
     Dosage: 5 MG, ONCE/SINGLE
     Dates: start: 20090309, end: 20090309
  2. MICARDIS [Concomitant]
     Dosage: 40 MG, UNK
  3. ZOCOR [Concomitant]
     Dosage: UNK, UNK
  4. VITAMIN D [Concomitant]
     Dosage: UNK, UNK
  5. CALCIUM [Concomitant]
     Dosage: UNK, UNK
  6. GLUCOSAMINE W/CHONDROITIN [Concomitant]
     Dosage: UNK, UNK

REACTIONS (7)
  - CONDITION AGGRAVATED [None]
  - EYE PAIN [None]
  - EYELID PTOSIS [None]
  - HEADACHE [None]
  - PAIN [None]
  - PAROPHTHALMIA [None]
  - PYREXIA [None]
